FAERS Safety Report 8889273 (Version 1)
Quarter: 2012Q4

REPORT INFORMATION
  Report Type: 
  Country: CA (occurrence: CA)
  Receive Date: 20121106
  Receipt Date: 20121106
  Transmission Date: 20130627
  Serious: Yes (Other)
  Sender: FDA-Public Use
  Company Number: CA-B.I. PHARMACEUTICALS,INC./RIDGEFIELD-2012-CN-02209CN

PATIENT
  Sex: Male

DRUGS (1)
  1. PRADAX [Suspect]

REACTIONS (1)
  - Cerebrovascular accident [Unknown]
